FAERS Safety Report 14524376 (Version 3)
Quarter: 2018Q1

REPORT INFORMATION
  Report Type: Spontaneous
  Country: US (occurrence: US)
  Receive Date: 20180213
  Receipt Date: 20180221
  Transmission Date: 20180509
  Serious: Yes (Hospitalization, Other)
  Sender: FDA-Public Use
  Company Number: US-PFIZER INC-2018061930

PATIENT
  Age: 69 Year
  Sex: Male

DRUGS (1)
  1. XELJANZ [Suspect]
     Active Substance: TOFACITINIB CITRATE
     Indication: RHEUMATOID ARTHRITIS
     Dosage: 5 MG, 2X/DAY
     Route: 048
     Dates: start: 2017

REACTIONS (7)
  - Memory impairment [Unknown]
  - Pneumonia [Unknown]
  - Body temperature increased [Unknown]
  - Weight decreased [Unknown]
  - Loss of consciousness [Unknown]
  - Arthralgia [Unknown]
  - Fall [Unknown]
